FAERS Safety Report 20591786 (Version 1)
Quarter: 2022Q1

REPORT INFORMATION
  Report Type: Spontaneous
  Country: US (occurrence: US)
  Receive Date: 20220314
  Receipt Date: 20220314
  Transmission Date: 20220423
  Serious: No
  Sender: FDA-Public Use
  Company Number: US-HORIZON THERAPEUTICS-HZN-2021-002390

PATIENT

DRUGS (2)
  1. PENNSAID [Suspect]
     Active Substance: DICLOFENAC SODIUM
     Indication: Pain
     Dosage: UNK UNK, QID
     Route: 065
     Dates: start: 20210125
  2. PENNSAID [Suspect]
     Active Substance: DICLOFENAC SODIUM
     Indication: Inflammation

REACTIONS (3)
  - Product quality issue [Unknown]
  - Off label use [Unknown]
  - Off label use [Unknown]
